FAERS Safety Report 7400120-3 (Version None)
Quarter: 2011Q2

REPORT INFORMATION
  Report Type: 
  Country: None (occurrence: None)
  Receive Date: 20110407
  Receipt Date: 20101208
  Transmission Date: 20111010
  Serious: No
  Sender: FDA-Public Use
  Company Number: US-KINGPHARMUSA00001-K201001498

PATIENT
  Sex: Female
  Weight: 82.086 kg

DRUGS (4)
  1. ESTRADIOL [Concomitant]
     Indication: HORMONE REPLACEMENT THERAPY
     Dosage: 0.4 UNK, QD
  2. METFORMIN [Concomitant]
     Dosage: 500 MG, QD
  3. VICTOZA [Concomitant]
     Dosage: 0.6 UNK, QD
  4. SKELAXIN [Suspect]
     Indication: ABDOMINAL DISCOMFORT
     Dosage: UNK, TID
     Route: 048
     Dates: start: 20100501, end: 20100501

REACTIONS (5)
  - ABDOMINAL DISCOMFORT [None]
  - NAUSEA [None]
  - FEELING ABNORMAL [None]
  - DIZZINESS [None]
  - HEPATIC ENZYME INCREASED [None]
